FAERS Safety Report 6289080-9 (Version None)
Quarter: 2009Q3

REPORT INFORMATION
  Report Type: 
  Country: None (occurrence: None)
  Receive Date: 20090729
  Receipt Date: 20090722
  Transmission Date: 20100115
  Serious: Yes (Hospitalization, Disabling)
  Sender: FDA-Public Use
  Company Number: BR-ASTRAZENECA-2009UW20995

PATIENT
  Age: 67 Year
  Sex: Male

DRUGS (2)
  1. ZOLADEX [Suspect]
     Indication: PROSTATE CANCER
     Route: 058
     Dates: start: 20050101, end: 20090614
  2. ZOLADEX [Suspect]
     Route: 058
     Dates: start: 20090714

REACTIONS (2)
  - BRAIN STEM SYNDROME [None]
  - CONSTIPATION [None]
